FAERS Safety Report 7124723-9 (Version None)
Quarter: 2010Q4

REPORT INFORMATION
  Report Type: 
  Country: None (occurrence: None)
  Receive Date: 20101122
  Receipt Date: 20101122
  Transmission Date: 20110411
  Serious: No
  Sender: FDA-Public Use
  Company Number: None

PATIENT
  Age: 57 Year
  Sex: Male
  Weight: 90.7194 kg

DRUGS (1)
  1. TOPIRAMATE [Suspect]
     Dosage: 100MG DAILY PO
     Route: 048

REACTIONS (2)
  - DIARRHOEA [None]
  - NAUSEA [None]
